FAERS Safety Report 5389143-6 (Version None)
Quarter: 2007Q3

REPORT INFORMATION
  Report Type: 
  Country: None (occurrence: None)
  Receive Date: 20070713
  Receipt Date: 20070713
  Transmission Date: 20080115
  Serious: Yes (Life-Threatening, Hospitalization)
  Sender: FDA-Public Use
  Company Number: None

PATIENT
  Age: 79 Year
  Sex: Female
  Weight: 65.318 kg

DRUGS (13)
  1. REVLIMID [Suspect]
     Indication: MULTIPLE MYELOMA
     Dosage: 25 MG DAILY PO
     Route: 048
     Dates: start: 20070513, end: 20070529
  2. FUROSEMIDE [Concomitant]
  3. DEXAMETHASONE 0.5MG TAB [Concomitant]
  4. ALLOPURINOL [Concomitant]
  5. LEVOTHYROXINE SODIUM [Concomitant]
  6. CARVEDILOL [Concomitant]
  7. VENLAFAXINE HCL [Concomitant]
  8. CETIRIZINE HCL [Concomitant]
  9. ENOXAPARIN SODIUM [Concomitant]
  10. ASPIRIN [Concomitant]
  11. MULIVITAMIN [Concomitant]
  12. CALCIUM CARBONATE [Concomitant]
  13. HYDROXYZINE [Concomitant]

REACTIONS (14)
  - ACTIVITIES OF DAILY LIVING IMPAIRED [None]
  - ASTHENIA [None]
  - DYSSTASIA [None]
  - FAECAL INCONTINENCE [None]
  - FATIGUE [None]
  - HYPOTENSION [None]
  - MENTAL STATUS CHANGES [None]
  - MOVEMENT DISORDER [None]
  - NEUROPATHY PERIPHERAL [None]
  - PAIN [None]
  - PNEUMOTHORAX [None]
  - RASH [None]
  - RENAL FAILURE ACUTE [None]
  - URINARY INCONTINENCE [None]
